FAERS Safety Report 8443899-4 (Version None)
Quarter: 2012Q2

REPORT INFORMATION
  Report Type: 
  Country: None (occurrence: None)
  Receive Date: 20120618
  Receipt Date: 20120605
  Transmission Date: 20120825
  Serious: Yes (Hospitalization)
  Sender: FDA-Public Use
  Company Number: US-BAYER-2012-052367

PATIENT
  Age: 22 Year
  Sex: Female
  Weight: 81.633 kg

DRUGS (14)
  1. SCOPOLAMIN [Concomitant]
     Dosage: 1.5 MG, UNK
     Route: 062
     Dates: start: 20090617
  2. MORPHINE [Concomitant]
     Dosage: 2 MG, UNK
     Route: 042
     Dates: start: 20090617
  3. ANCEF [Concomitant]
     Dosage: 1 GM
     Route: 042
     Dates: start: 20090617
  4. AZITHROMYCIN [Concomitant]
     Dosage: 250 MG, UNK
     Dates: start: 20090528
  5. VENTOLIN [Concomitant]
     Dosage: 90MCG
     Dates: start: 20090528
  6. ZOFRAN [Concomitant]
     Dosage: 4 MG, UNK
     Route: 042
     Dates: start: 20090617
  7. AMBIEN [Concomitant]
     Indication: SLEEP DISORDER
     Dosage: UNK UNK, PRN
  8. HYDROCODONE BITARTRATE AND ACETAMINOPHEN [Concomitant]
     Dosage: 5 TO 7.5/500 TO 750 MG, 1 TABLET EVERY 4 HOURS PRN
     Route: 048
     Dates: start: 20090617, end: 20090730
  9. FLUCONAZOLE [Concomitant]
     Dosage: 150 MG, UNK
     Dates: start: 20090528
  10. YASMIN [Suspect]
     Indication: CONTRACEPTION
     Dosage: UNK
     Dates: start: 20041108, end: 20080701
  11. HYDROCODONE BITARTRATE AND ACETAMINOPHEN [Concomitant]
     Indication: PAIN
     Dosage: 5 TO 7.5/500 TO 750 MG, 1 TABLET EVERY 4 HOURS PRN
     Route: 048
     Dates: start: 20090617, end: 20090730
  12. DROSPIRENONE AND ETHINYL ESTRADIOL [Suspect]
     Indication: CONTRACEPTION
     Dosage: UNK
     Dates: start: 20080820, end: 20090727
  13. ATIVAN [Concomitant]
     Indication: ANXIETY
  14. VERSED [Concomitant]
     Dosage: 2 MG, UNK
     Route: 042
     Dates: start: 20090617

REACTIONS (5)
  - ARTHRALGIA [None]
  - PAIN [None]
  - INJURY [None]
  - OEDEMA PERIPHERAL [None]
  - DEEP VEIN THROMBOSIS [None]
